FAERS Safety Report 8122696-3 (Version None)
Quarter: 2012Q1

REPORT INFORMATION
  Report Type: 
  Country: None (occurrence: None)
  Receive Date: 20120208
  Receipt Date: 20120131
  Transmission Date: 20120608
  Serious: No
  Sender: FDA-Public Use
  Company Number: US-BIOGENIDEC-2010BI034606

PATIENT
  Sex: Female

DRUGS (1)
  1. TYSABRI [Suspect]
     Indication: MULTIPLE SCLEROSIS
     Route: 042
     Dates: start: 20070413, end: 20100913

REACTIONS (8)
  - MULTIPLE SCLEROSIS [None]
  - DRUG INEFFECTIVE [None]
  - FALL [None]
  - RIB FRACTURE [None]
  - DIARRHOEA [None]
  - FEELING ABNORMAL [None]
  - INCONTINENCE [None]
  - DRUG SPECIFIC ANTIBODY PRESENT [None]
